FAERS Safety Report 4645500-4 (Version None)
Quarter: 2005Q2

REPORT INFORMATION
  Report Type: 
  Country: None (occurrence: None)
  Receive Date: 20050425
  Receipt Date: 20050414
  Transmission Date: 20051028
  Serious: Yes (Death, Other)
  Sender: FDA-Public Use
  Company Number: 2005-04-0819

PATIENT
  Age: 44 Year
  Sex: Female

DRUGS (3)
  1. TEMOZOLOMIDE [Suspect]
     Indication: ANAPLASTIC ASTROCYTOMA
     Dosage: SEE IMAGE
     Route: 048
     Dates: start: 20030201, end: 20030701
  2. TEMOZOLOMIDE [Suspect]
     Indication: ANAPLASTIC ASTROCYTOMA
     Dosage: SEE IMAGE
     Route: 048
     Dates: start: 20021201
  3. RADIATION THERAPY [Concomitant]

REACTIONS (10)
  - ACUTE LEUKAEMIA [None]
  - ANAPLASTIC ASTROCYTOMA [None]
  - BONE MARROW DEPRESSION [None]
  - FEBRILE NEUTROPENIA [None]
  - MALIGNANT NEOPLASM PROGRESSION [None]
  - MYELODYSPLASTIC SYNDROME [None]
  - PANCYTOPENIA [None]
  - REFRACTORY ANAEMIA WITH AN EXCESS OF BLASTS [None]
  - THERAPY NON-RESPONDER [None]
  - THROMBOCYTOPENIA [None]
